FAERS Safety Report 21577987 (Version 3)
Quarter: 2022Q4

REPORT INFORMATION
  Report Type: Report from Study
  Country: US (occurrence: US)
  Receive Date: 20221110
  Receipt Date: 20221222
  Transmission Date: 20230113
  Serious: Yes (Hospitalization, Other)
  Sender: FDA-Public Use
  Company Number: US-TAKEDA-US201914768

PATIENT
  Sex: Female
  Weight: 91 kg

DRUGS (15)
  1. LANADELUMAB [Suspect]
     Active Substance: LANADELUMAB
     Indication: Immune system disorder
     Dosage: 300 MILLIGRAM, Q2WEEKS
     Route: 058
     Dates: start: 20190313
  2. LANADELUMAB [Suspect]
     Active Substance: LANADELUMAB
     Dosage: 300 MILLIGRAM, Q2WEEKS
     Route: 058
     Dates: start: 20220714
  3. DIPHENHYDRAMINE HYDROCHLORIDE [Concomitant]
     Active Substance: DIPHENHYDRAMINE HYDROCHLORIDE
     Route: 065
  4. SODIUM CHLORIDE [Concomitant]
     Active Substance: SODIUM CHLORIDE
  5. SODIUM CHLORIDE [Concomitant]
     Active Substance: SODIUM CHLORIDE
  6. ONDANSETRON [Concomitant]
     Active Substance: ONDANSETRON
  7. STERILE WATER [Concomitant]
     Active Substance: WATER
  8. EPINEPHRINE [Concomitant]
     Active Substance: EPINEPHRINE
  9. RUCONEST [Concomitant]
     Active Substance: HUMAN C1-ESTERASE INHIBITOR
  10. SINGULAIR [Concomitant]
     Active Substance: MONTELUKAST SODIUM
  11. XOLAIR [Concomitant]
     Active Substance: OMALIZUMAB
  12. ZYRTEC [Concomitant]
     Active Substance: CETIRIZINE HYDROCHLORIDE
  13. PROZAC [Concomitant]
     Active Substance: FLUOXETINE HYDROCHLORIDE
  14. FAMOTIDINE [Concomitant]
     Active Substance: FAMOTIDINE
  15. STERILE WATER [Concomitant]
     Active Substance: WATER

REACTIONS (9)
  - Pneumonia [Unknown]
  - Pulmonary embolism [Unknown]
  - Hereditary angioedema [Unknown]
  - Pulmonary thrombosis [Unknown]
  - Nerve block [Unknown]
  - Post procedural swelling [Unknown]
  - COVID-19 [Recovered/Resolved]
  - Cardiac disorder [Unknown]
  - Product dose omission issue [Unknown]
